FAERS Safety Report 7836450-0 (Version None)
Quarter: 2011Q4

REPORT INFORMATION
  Report Type: 
  Country: None (occurrence: None)
  Receive Date: 20111024
  Receipt Date: 20110608
  Transmission Date: 20120403
  Serious: No
  Sender: FDA-Public Use
  Company Number: US-ABBOTT-11P-163-0731376-00

PATIENT
  Sex: Female
  Weight: 74.91 kg

DRUGS (5)
  1. CELEXA [Concomitant]
     Indication: ANXIETY
     Dates: start: 20110301, end: 20110501
  2. TOPAMAX [Concomitant]
     Indication: MIGRAINE
  3. LEVOTHYROXINE SODIUM [Concomitant]
     Indication: HYPOTHYROIDISM
  4. LUPRON DEPOT [Suspect]
     Indication: ENDOMETRIOSIS
     Route: 030
     Dates: start: 20110201
  5. CELEXA [Concomitant]
     Indication: MOOD SWINGS

REACTIONS (7)
  - ADNEXA UTERI PAIN [None]
  - MOOD SWINGS [None]
  - FEELING ABNORMAL [None]
  - CHEST PAIN [None]
  - DIZZINESS [None]
  - HOT FLUSH [None]
  - PALPITATIONS [None]
